FAERS Safety Report 12393930 (Version 2)
Quarter: 2016Q2

REPORT INFORMATION
  Report Type: Report from Study
  Country: US (occurrence: US)
  Receive Date: 20160523
  Receipt Date: 20160531
  Transmission Date: 20160815
  Serious: Yes (Death, Hospitalization)
  Sender: FDA-Public Use
  Company Number: US-JNJFOC-20160518857

PATIENT
  Sex: Female

DRUGS (9)
  1. IMBRUVICA [Suspect]
     Active Substance: IBRUTINIB
     Indication: CHRONIC LYMPHOCYTIC LEUKAEMIA
     Route: 048
     Dates: start: 20150219
  2. STOOL SOFTENER [Concomitant]
     Active Substance: DOCUSATE CALCIUM
  3. METFORMIN [Concomitant]
     Active Substance: METFORMIN HYDROCHLORIDE
  4. COUMADIN [Concomitant]
     Active Substance: WARFARIN SODIUM
  5. LANTUS [Concomitant]
     Active Substance: INSULIN GLARGINE
  6. LISINOPRIL. [Concomitant]
     Active Substance: LISINOPRIL
  7. LIPITOR [Concomitant]
     Active Substance: ATORVASTATIN CALCIUM
  8. NOVOLOG [Concomitant]
     Active Substance: INSULIN ASPART
  9. IRON [Concomitant]
     Active Substance: IRON

REACTIONS (3)
  - Death [Fatal]
  - Fall [Unknown]
  - Dysphagia [Unknown]
